FAERS Safety Report 9718061 (Version 1)
Quarter: 2013Q4

REPORT INFORMATION
  Report Type: Spontaneous
  Country: US (occurrence: US)
  Receive Date: 20131127
  Receipt Date: 20131127
  Transmission Date: 20140711
  Serious: Yes (Hospitalization, Other)
  Sender: FDA-Public Use
  Company Number: US-ABBVIE-13P-163-1172623-00

PATIENT
  Age: 45 Year
  Sex: Male
  Weight: 90.35 kg

DRUGS (3)
  1. HUMIRA [Suspect]
     Indication: CROHN^S DISEASE
     Route: 058
     Dates: start: 201012, end: 201012
  2. HUMIRA [Suspect]
     Dosage: 2 WEEKS AFTER INITIAL DOSE
     Route: 058
     Dates: start: 201012, end: 201012
  3. HUMIRA [Suspect]
     Dosage: 4 WEEKS AFTER INITIAL DOSE
     Route: 058
     Dates: start: 201012, end: 2013

REACTIONS (12)
  - Cyst [Recovered/Resolved]
  - Device occlusion [Recovered/Resolved]
  - Ventricular extrasystoles [Unknown]
  - Coronary artery occlusion [Unknown]
  - Heart rate irregular [Unknown]
  - Haematochezia [Unknown]
  - Anuria [Unknown]
  - Chest pain [Recovered/Resolved]
  - Pain [Recovered/Resolved]
  - Nausea [Recovered/Resolved]
  - Vomiting [Unknown]
  - Dyspnoea [Unknown]
